FAERS Safety Report 6386033-7 (Version None)
Quarter: 2009Q4

REPORT INFORMATION
  Report Type: 
  Country: None (occurrence: None)
  Receive Date: 20091002
  Receipt Date: 20090121
  Transmission Date: 20100525
  Serious: No
  Sender: FDA-Public Use
  Company Number: US-ASTRAZENECA-2008UW24006

PATIENT
  Age: 75 Year
  Sex: Female

DRUGS (8)
  1. ARIMIDEX [Suspect]
     Dosage: UNKNOWN
     Route: 048
     Dates: start: 20080701, end: 20081119
  2. ARIMIDEX [Suspect]
     Dosage: UNKNOWN
     Route: 048
     Dates: start: 20081231
  3. TIKOSAN [Concomitant]
  4. SECTRAL [Concomitant]
  5. SYNTHROID [Concomitant]
  6. ALENDRONATE SODIUM [Concomitant]
  7. COUMADIN [Concomitant]
  8. ZOCOR [Concomitant]

REACTIONS (4)
  - ASTHENIA [None]
  - FATIGUE [None]
  - MOBILITY DECREASED [None]
  - POLLAKIURIA [None]
